FAERS Safety Report 15067345 (Version 1)
Quarter: 2018Q2

REPORT INFORMATION
  Report Type: Spontaneous
  Country: IT (occurrence: IT)
  Receive Date: 20180626
  Receipt Date: 20180626
  Transmission Date: 20180711
  Serious: Yes (Other)
  Sender: FDA-Public Use
  Company Number: IT-PURACAP PHARMACEUTICAL LLC-2018EPC00311

PATIENT
  Age: 21 Month
  Sex: Female

DRUGS (1)
  1. IBUPROFEN. [Suspect]
     Active Substance: IBUPROFEN
     Indication: ARTHRITIS
     Dosage: 40 MG/KG, 1X/DAY
     Route: 065

REACTIONS (1)
  - Liver injury [Recovered/Resolved]
